FAERS Safety Report 10525394 (Version 1)
Quarter: 2014Q4

REPORT INFORMATION
  Report Type: Spontaneous
  Country: SI (occurrence: None)
  Receive Date: 20141015
  Receipt Date: 20141015
  Transmission Date: 20150528
  Serious: Yes (Other)
  Sender: FDA-Public Use
  Company Number: B1036861A

PATIENT
  Age: 40 Year
  Sex: Female

DRUGS (2)
  1. PAROXETINE HYDROCHLORIDE (FORMULATION UNKNOWN) (PAROXETINE HYDROCHLORIDE) [Suspect]
     Active Substance: PAROXETINE HYDROCHLORIDE
     Indication: DEPRESSION
  2. BUPROPION HYDROCHLORIDE. [Suspect]
     Active Substance: BUPROPION HYDROCHLORIDE
     Indication: DEPRESSION

REACTIONS (11)
  - Therapy cessation [None]
  - Irritability [None]
  - Anxiety [None]
  - Paraesthesia [None]
  - Cognitive disorder [None]
  - Depressed mood [None]
  - Headache [None]
  - Sensory disturbance [None]
  - Libido decreased [None]
  - Multiple sclerosis [None]
  - Tension [None]
